FAERS Safety Report 7822021-9 (Version None)
Quarter: 2011Q4

REPORT INFORMATION
  Report Type: 
  Country: None (occurrence: None)
  Receive Date: 20111018
  Receipt Date: 20111010
  Transmission Date: 20120403
  Serious: Yes (Hospitalization, Other)
  Sender: FDA-Public Use
  Company Number: PHHY2011IL89724

PATIENT
  Age: 65 Year
  Sex: Male
  Weight: 85 kg

DRUGS (3)
  1. STATIN [Concomitant]
     Indication: HYPERLIPIDAEMIA
  2. ASPIRIN [Concomitant]
     Route: 048
  3. SANDOSTATIN LAR [Suspect]
     Indication: ACROMEGALY
     Dosage: 30 MG, EVERY 28 DAYS
     Dates: start: 20090713

REACTIONS (1)
  - NEPHROLITHIASIS [None]
